FAERS Safety Report 8778868 (Version 2)
Quarter: 2012Q4

REPORT INFORMATION
  Report Type: Report from Study
  Country: SE (occurrence: SE)
  Receive Date: 20120912
  Receipt Date: 20120918
  Transmission Date: 20130627
  Serious: Yes (Hospitalization, Other)
  Sender: FDA-Public Use
  Company Number: PHHY2012SE079046

PATIENT
  Age: 50 Year
  Sex: Male
  Weight: 167 kg

DRUGS (3)
  1. CERTICAN [Suspect]
     Indication: PROPHYLAXIS AGAINST TRANSPLANT REJECTION
     Dosage: 2 mg, UNK
     Route: 048
     Dates: start: 20060724
  2. INSULIN [Concomitant]
     Indication: DIABETES MELLITUS
  3. PREDNISOLON [Concomitant]
     Indication: PROPHYLAXIS AGAINST TRANSPLANT REJECTION
     Dosage: 5 mg,
     Dates: start: 200308

REACTIONS (2)
  - Rectal haemorrhage [Recovered/Resolved]
  - Haemoglobin decreased [Recovered/Resolved]
